FAERS Safety Report 5873109-3 (Version None)
Quarter: 2008Q3

REPORT INFORMATION
  Report Type: 
  Country: None (occurrence: None)
  Receive Date: 20080908
  Receipt Date: 20080827
  Transmission Date: 20090109
  Serious: Yes (Other)
  Sender: FDA-Public Use
  Company Number: DE-RANBAXY-2008RR-17634

PATIENT

DRUGS (2)
  1. IBUPROFENE RPG 200MG COMPRIME PELLICULE [Suspect]
     Indication: ARTHRALGIA
     Dosage: 600 MG, QD
     Route: 048
     Dates: start: 20080703, end: 20080718
  2. IBUPROFENE RPG 200MG COMPRIME PELLICULE [Suspect]
     Dosage: 600 MG, QD
     Route: 048
     Dates: start: 20080724, end: 20080728

REACTIONS (1)
  - AGGRESSION [None]
